FAERS Safety Report 18274406 (Version 2)
Quarter: 2021Q3

REPORT INFORMATION
  Report Type: Spontaneous
  Country: US (occurrence: US)
  Receive Date: 20200916
  Receipt Date: 20210909
  Transmission Date: 20211014
  Serious: Yes (Other)
  Sender: FDA-Public Use
  Company Number: US-SA-2020SA250314

PATIENT
  Age: 51 Year
  Sex: Male

DRUGS (1)
  1. ZANTAC [Suspect]
     Active Substance: RANITIDINE HYDROCHLORIDE
     Indication: GASTROOESOPHAGEAL REFLUX DISEASE
     Dosage: 150 MG, QD
     Dates: start: 201204, end: 201505

REACTIONS (2)
  - Colorectal cancer stage I [Unknown]
  - Anal cancer [Unknown]

NARRATIVE: CASE EVENT DATE: 201505
